FAERS Safety Report 18699938 (Version 1)
Quarter: 2021Q1

REPORT INFORMATION
  Report Type: Spontaneous
  Country: US (occurrence: US)
  Receive Date: 20210105
  Receipt Date: 20210105
  Transmission Date: 20210419
  Serious: Yes (Hospitalization, Other)
  Sender: FDA-Public Use
  Company Number: US-ASTELLAS-2020US046480

PATIENT
  Age: 8 Decade
  Sex: Female

DRUGS (1)
  1. TACROLIMUS. [Suspect]
     Active Substance: TACROLIMUS
     Indication: ALLOGENIC STEM CELL TRANSPLANTATION
     Dosage: UNK UNK, UNKNOWN FREQ.
     Route: 065

REACTIONS (5)
  - Sepsis [Unknown]
  - Thrombotic microangiopathy [Not Recovered/Not Resolved]
  - Renal tubular necrosis [Recovering/Resolving]
  - Pneumonia cytomegaloviral [Unknown]
  - Escherichia bacteraemia [Unknown]
